FAERS Safety Report 24064721 (Version 6)
Quarter: 2024Q3

REPORT INFORMATION
  Report Type: Spontaneous
  Country: US (occurrence: US)
  Receive Date: 20240709
  Receipt Date: 20240920
  Transmission Date: 20241016
  Serious: Yes (Death, Life-Threatening, Hospitalization, Other)
  Sender: HIKMA
  Company Number: US-HIKMA PHARMACEUTICALS-US-H14001-24-06118

PATIENT
  Age: 82 Year
  Sex: Female
  Weight: 79.46 kg

DRUGS (35)
  1. CARBOPLATIN [Suspect]
     Active Substance: CARBOPLATIN
     Indication: Non-small cell lung cancer
     Dosage: UNKNOWN
     Route: 042
     Dates: start: 20231227, end: 20240213
  2. CARBOPLATIN [Suspect]
     Active Substance: CARBOPLATIN
     Indication: Non-small cell lung cancer
     Dosage: 430 MILLIGRAM, SINGLE
     Route: 042
     Dates: start: 20240213, end: 20240213
  3. PEMETREXED [Suspect]
     Active Substance: PEMETREXED
     Indication: Non-small cell lung cancer
     Dosage: 500 MILLIGRAM/SQ. METER, 3W
     Route: 042
     Dates: start: 20231227, end: 20231227
  4. PEMETREXED [Suspect]
     Active Substance: PEMETREXED
     Dosage: 500 MILLIGRAM/SQ. METER, SINGLE
     Route: 042
     Dates: start: 20240213, end: 20240213
  5. VUDALIMAB [Suspect]
     Active Substance: VUDALIMAB
     Indication: Non-small cell lung cancer
     Dosage: 750 MILLIGRAM, SINGLE
     Route: 042
     Dates: start: 20231227, end: 20231227
  6. VUDALIMAB [Suspect]
     Active Substance: VUDALIMAB
     Dosage: 750 MILLIGRAM, SINGLE
     Route: 042
     Dates: start: 20240213, end: 20240213
  7. ATORVASTATIN [Concomitant]
     Active Substance: ATORVASTATIN
     Indication: Product used for unknown indication
     Dosage: UNKNOWN
     Route: 065
     Dates: start: 201002
  8. BENADRYL ORIGINAL STRENGTH ITCH STOPPING [Concomitant]
     Active Substance: DIPHENHYDRAMINE HYDROCHLORIDE\ZINC ACETATE
     Indication: Product used for unknown indication
     Dosage: UNKNOWN
     Route: 065
     Dates: start: 20240119
  9. CEFDINIR [Concomitant]
     Active Substance: CEFDINIR
     Indication: Pneumonia
     Dosage: UNKNOWN
     Route: 065
  10. CODEINE SULFATE;GUAIFENESIN [Concomitant]
     Indication: Product used for unknown indication
     Dosage: UNK
     Route: 065
     Dates: start: 202404
  11. DELTASONE [Concomitant]
     Active Substance: PREDNISONE
     Dosage: 100 MILLIGRAM, QD
     Route: 048
     Dates: start: 20240324, end: 20240605
  12. DELTASONE [Concomitant]
     Active Substance: PREDNISONE
     Dosage: 20 MILLIGRAM
     Route: 065
     Dates: start: 20240326
  13. DELTASONE [Concomitant]
     Active Substance: PREDNISONE
     Dosage: 40 MILLIGRAM, QD
     Route: 048
     Dates: start: 20240607, end: 20240611
  14. DELTASONE [Concomitant]
     Active Substance: PREDNISONE
     Dosage: 40 MILLIGRAM, QD
     Route: 065
     Dates: start: 20240223
  15. DELTASONE [Concomitant]
     Active Substance: PREDNISONE
     Dosage: 60 MILLIGRAM, X5 DAYS, TAPER
     Route: 065
     Dates: start: 20240216
  16. DELTASONE [Concomitant]
     Active Substance: PREDNISONE
     Dosage: 80 MILLIGRAM, QD
     Route: 048
     Dates: start: 20240612, end: 20240614
  17. DELTASONE [Concomitant]
     Active Substance: PREDNISONE
     Indication: Adrenal insufficiency
     Dosage: TAPER
     Route: 065
     Dates: start: 20240114
  18. DEXAMETHASONE [Concomitant]
     Active Substance: DEXAMETHASONE
     Dosage: 4 MILLIGRAM, BID; DAY BEFORE, DAY OF, AND DAY AFTER TREATMENT (8MG PO QD X3)
     Route: 048
     Dates: start: 20240213
  19. DEXAMETHASONE [Concomitant]
     Active Substance: DEXAMETHASONE
     Indication: Product used for unknown indication
     Dosage: UNKNOWN
     Route: 065
     Dates: start: 20231227
  20. FLUCONAZOLE [Concomitant]
     Active Substance: FLUCONAZOLE
     Indication: Product used for unknown indication
     Dosage: 100MG, QD
     Route: 048
     Dates: start: 20240227, end: 20240229
  21. FOLVITE [Concomitant]
     Active Substance: FOLIC ACID
     Indication: Product used for unknown indication
     Dosage: UNKNOWN
     Route: 065
     Dates: start: 20231227
  22. METHYLPREDNISOLONE [Concomitant]
     Active Substance: METHYLPREDNISOLONE
     Indication: Product used for unknown indication
     Dosage: 40 MILLIGRAM, Q6H
     Route: 042
     Dates: start: 20240501
  23. PEPCID [Concomitant]
     Active Substance: FAMOTIDINE
     Indication: Product used for unknown indication
     Dosage: UNKNOWN
     Route: 065
     Dates: start: 20240103
  24. PLATELETS [Concomitant]
     Active Substance: HUMAN PLATELET, ALLOGENIC
     Dosage: 1 U
     Route: 065
     Dates: start: 20240229, end: 20240229
  25. PLATELETS [Concomitant]
     Active Substance: HUMAN PLATELET, ALLOGENIC
     Indication: Product used for unknown indication
     Dosage: 2 U
     Route: 065
     Dates: start: 20240222, end: 20240229
  26. PREDNISONE [Concomitant]
     Active Substance: PREDNISONE
     Dosage: 100 MILLIGRAM, QD
     Route: 065
     Dates: start: 20240324, end: 20240605
  27. PREDNISONE [Concomitant]
     Active Substance: PREDNISONE
     Dosage: 100 MILLIGRAM
     Route: 048
     Dates: start: 20240430
  28. PREDNISONE [Concomitant]
     Active Substance: PREDNISONE
     Dosage: 40 MILLIGRAM, QD
     Route: 065
     Dates: start: 20240222
  29. PREDNISONE [Concomitant]
     Active Substance: PREDNISONE
     Dosage: 40 MILLIGRAM, QD
     Route: 065
     Dates: start: 20240226
  30. PREDNISONE [Concomitant]
     Active Substance: PREDNISONE
     Indication: Product used for unknown indication
     Dosage: 60 MILLIGRAM
     Route: 065
     Dates: start: 20240216
  31. PREDNISONE [Concomitant]
     Active Substance: PREDNISONE
     Dosage: 100 MILLIGRAM, QD
     Route: 048
     Dates: start: 20240504
  32. HUMAN RED BLOOD CELL [Concomitant]
     Active Substance: HUMAN RED BLOOD CELL
     Indication: Product used for unknown indication
     Dosage: UNKNOWN
     Route: 065
     Dates: start: 20240222, end: 20240229
  33. RIABNI [Concomitant]
     Active Substance: RITUXIMAB-ARRX
     Indication: Haemolytic anaemia
     Dosage: 671.3 MILLIGRAM, WEEKLY
     Route: 042
     Dates: start: 20240326
  34. TRIAMCINOLONE ACETONIDE [Concomitant]
     Active Substance: TRIAMCINOLONE ACETONIDE
     Indication: Product used for unknown indication
     Dosage: UNKNOWN
     Route: 065
     Dates: start: 20240227
  35. VITAMIN B12 [Concomitant]
     Active Substance: CYANOCOBALAMIN
     Indication: Product used for unknown indication
     Dosage: UNKNOWN
     Route: 065
     Dates: start: 20231227

REACTIONS (33)
  - Hypoxia [Fatal]
  - Lung infiltration [Fatal]
  - Pancytopenia [Recovered/Resolved]
  - Platelet count decreased [Not Recovered/Not Resolved]
  - Anaemia [Not Recovered/Not Resolved]
  - Adrenal insufficiency [Recovering/Resolving]
  - Presyncope [Unknown]
  - Haemolytic anaemia [Recovered/Resolved]
  - Pneumonia [Recovered/Resolved]
  - Rash maculo-papular [Recovering/Resolving]
  - Inappropriate antidiuretic hormone secretion [Unknown]
  - Acute respiratory failure [Unknown]
  - Autoimmune disorder [Unknown]
  - Hypotension [Unknown]
  - Hyponatraemia [Unknown]
  - Disease progression [Unknown]
  - Blood glucose increased [Unknown]
  - Blood urea increased [Unknown]
  - Neutrophil count increased [Unknown]
  - Lymphocyte percentage decreased [Unknown]
  - White blood cell count increased [Unknown]
  - Dizziness [Unknown]
  - Band neutrophil count increased [Unknown]
  - Blood albumin decreased [Unknown]
  - Blood chloride decreased [Unknown]
  - Blood sodium decreased [Unknown]
  - C-reactive protein increased [Unknown]
  - Lipase decreased [Unknown]
  - Procalcitonin increased [Unknown]
  - Glomerular filtration rate decreased [Unknown]
  - Hypopituitarism [Unknown]
  - Skin laceration [Unknown]
  - Pneumonitis [Recovered/Resolved]

NARRATIVE: CASE EVENT DATE: 20240119
